FAERS Safety Report 15676545 (Version 2)
Quarter: 2018Q4

REPORT INFORMATION
  Report Type: Spontaneous
  Country: RO (occurrence: RO)
  Receive Date: 20181130
  Receipt Date: 20181203
  Transmission Date: 20190205
  Serious: Yes (Hospitalization, Other)
  Sender: FDA-Public Use
  Company Number: RO-JNJFOC-20181131903

PATIENT
  Sex: Female

DRUGS (1)
  1. RISPOLEPT CONSTA [Suspect]
     Active Substance: RISPERIDONE
     Indication: SCHIZOPHRENIA
     Route: 030
     Dates: start: 2012

REACTIONS (4)
  - Social avoidant behaviour [Unknown]
  - Loose associations [Recovered/Resolved]
  - Flat affect [Recovered/Resolved]
  - Restlessness [Unknown]
